FAERS Safety Report 5190182-9 (Version None)
Quarter: 2006Q4

REPORT INFORMATION
  Report Type: 
  Country: None (occurrence: None)
  Receive Date: 20061222
  Receipt Date: 20060921
  Transmission Date: 20070319
  Serious: No
  Sender: FDA-Public Use
  Company Number: US-AMGEN-KDL194262

PATIENT
  Sex: Male

DRUGS (6)
  1. ARANESP [Suspect]
     Indication: RENAL FAILURE CHRONIC
     Dates: start: 20060101
  2. VITAMIN B-12 [Suspect]
     Dates: start: 20060116
  3. PROTONIX [Concomitant]
  4. LOMOTIL [Concomitant]
  5. ATENOLOL [Concomitant]
  6. IRON [Concomitant]

REACTIONS (1)
  - THERAPEUTIC RESPONSE DECREASED [None]
